FAERS Safety Report 4713060-5 (Version None)
Quarter: 2005Q3

REPORT INFORMATION
  Report Type: 
  Country: None (occurrence: None)
  Receive Date: 20050711
  Receipt Date: 20050629
  Transmission Date: 20060218
  Serious: Yes (Hospitalization, Disabling)
  Sender: FDA-Public Use
  Company Number: HQWYE132321DEC04

PATIENT
  Age: 63 Year
  Sex: Female

DRUGS (4)
  1. RAPAMUNE [Suspect]
     Indication: PROPHYLAXIS AGAINST TRANSPLANT REJECTION
     Dosage: SEE IMAGE
     Route: 048
     Dates: start: 20041023, end: 20050101
  2. RAPAMUNE [Suspect]
     Indication: PROPHYLAXIS AGAINST TRANSPLANT REJECTION
     Dosage: SEE IMAGE
     Route: 048
     Dates: start: 20050101
  3. CORTICOSTEROIDS (CORTICOSTEROIDS) [Suspect]
     Indication: PROPHYLAXIS AGAINST TRANSPLANT REJECTION
  4. MYCOPHENOLATE MOFETIL (MYCOPHENOLATE MOFETIL) [Suspect]
     Indication: PROPHYLAXIS AGAINST TRANSPLANT REJECTION
     Dosage: ORAL
     Route: 048

REACTIONS (4)
  - ABASIA [None]
  - MONARTHRITIS [None]
  - OSTEOARTHRITIS [None]
  - X-RAY LIMB ABNORMAL [None]
